FAERS Safety Report 21873319 (Version 1)
Quarter: 2023Q1

REPORT INFORMATION
  Report Type: Spontaneous
  Country: FR (occurrence: FR)
  Receive Date: 20230117
  Receipt Date: 20230117
  Transmission Date: 20230417
  Serious: Yes (Other)
  Sender: FDA-Public Use
  Company Number: FR-MYLANLABS-2023M1004163

PATIENT
  Sex: Female

DRUGS (2)
  1. CYSTEAMINE [Suspect]
     Active Substance: CYSTEAMINE
     Indication: Cystinosis
     Dosage: UNK
     Route: 065
  2. CYSTEAMINE HYDROCHLORIDE [Suspect]
     Active Substance: CYSTEAMINE HYDROCHLORIDE
     Indication: Cystinosis
     Dosage: UNK
     Route: 065

REACTIONS (2)
  - Abortion spontaneous [Recovered/Resolved]
  - Maternal exposure during pregnancy [Unknown]
